FAERS Safety Report 10048803 (Version 2)
Quarter: 2014Q2

REPORT INFORMATION
  Report Type: Spontaneous
  Country: GB (occurrence: GB)
  Receive Date: 20140331
  Receipt Date: 20140417
  Transmission Date: 20141212
  Serious: Yes (Other)
  Sender: FDA-Public Use
  Company Number: PHHY2014GB034717

PATIENT
  Age: 56 Year
  Sex: Female

DRUGS (6)
  1. HYDROCORTISONE [Suspect]
     Indication: DERMATITIS ATOPIC
  2. HYDROCORTISONE [Suspect]
     Dosage: 10 MG, QD
     Route: 048
     Dates: end: 2012
  3. PREDNISOLONE [Suspect]
     Indication: ECZEMA
     Dosage: 30 MG, QD
     Route: 048
  4. PREDNISOLONE [Suspect]
     Indication: ASTHMA
  5. BETAMETHASONE [Suspect]
     Indication: DERMATITIS ATOPIC
     Route: 061
  6. BECLOMETHASONE [Suspect]
     Indication: ASTHMA
     Dosage: 400 UG, BID
     Route: 055

REACTIONS (13)
  - Cushing^s syndrome [Recovering/Resolving]
  - Telangiectasia [Recovering/Resolving]
  - Central obesity [Recovering/Resolving]
  - Osteopenia [Recovering/Resolving]
  - Skin striae [Recovering/Resolving]
  - Skin disorder [Recovering/Resolving]
  - Skin atrophy [Recovering/Resolving]
  - Contusion [Recovering/Resolving]
  - Glucose tolerance impaired [Recovering/Resolving]
  - Asthenia [Recovering/Resolving]
  - Hypotension [Recovering/Resolving]
  - Diarrhoea [Recovering/Resolving]
  - Adrenocortical insufficiency acute [Recovering/Resolving]
